FAERS Safety Report 8676798 (Version 8)
Quarter: 2014Q2

REPORT INFORMATION
  Report Type: Spontaneous
  Country: DK (occurrence: DK)
  Receive Date: 20120723
  Receipt Date: 20140411
  Transmission Date: 20141212
  Serious: Yes (Hospitalization, Disabling, Other)
  Sender: FDA-Public Use
  Company Number: DK-009507513-1106DNK00009

PATIENT
  Age: 59 Year
  Sex: Male
  Weight: 92 kg

DRUGS (5)
  1. JANUVIA [Suspect]
     Indication: DIABETES MELLITUS
     Dosage: DOSIS: 100 MG X 1, STYRKE: 100 MG
     Route: 048
     Dates: start: 20100129, end: 20110621
  2. CORODIL [Concomitant]
     Indication: HYPERTENSION
     Route: 048
  3. GLIMEPIRIDE [Concomitant]
     Indication: DIABETES MELLITUS
  4. AMLODIPIN ACTAVIS (AMLODIPINE BESYLATE) [Concomitant]
     Indication: HYPERTENSION
  5. METFORMIN ACTAVIS [Concomitant]
     Indication: DIABETES MELLITUS

REACTIONS (26)
  - Sepsis [Recovered/Resolved]
  - Pancreatitis necrotising [Recovered/Resolved]
  - Cerebral thrombosis [Recovered/Resolved]
  - Infection [Recovered/Resolved]
  - Cerebral thrombosis [Not Recovered/Not Resolved]
  - Pyelonephritis [Recovered/Resolved]
  - Nausea [Recovered/Resolved]
  - Vomiting [Recovered/Resolved]
  - Weight decreased [Unknown]
  - Chromaturia [Recovered/Resolved]
  - Faeces discoloured [Recovered/Resolved]
  - Abdominal pain [Recovered/Resolved]
  - Gait disturbance [Not Recovered/Not Resolved]
  - Memory impairment [Not Recovered/Not Resolved]
  - Pancreatitis chronic [Not Recovered/Not Resolved]
  - Disturbance in attention [Unknown]
  - Pancreatic pseudocyst [Unknown]
  - Pancreatic duct stenosis [Recovered/Resolved]
  - Pancreatitis haemorrhagic [Recovered/Resolved]
  - Pain [Not Recovered/Not Resolved]
  - Disability [Not Recovered/Not Resolved]
  - Muscular weakness [Unknown]
  - Muscular weakness [Unknown]
  - Fatigue [Unknown]
  - Disturbance in attention [Unknown]
  - Thrombosis [Unknown]
